FAERS Safety Report 4807637-6 (Version None)
Quarter: 2005Q4

REPORT INFORMATION
  Report Type: 
  Country: None (occurrence: None)
  Receive Date: 20051020
  Receipt Date: 20051011
  Transmission Date: 20060501
  Serious: Yes (Hospitalization, Other)
  Sender: FDA-Public Use
  Company Number: 2005124054

PATIENT
  Age: 83 Year
  Sex: Female

DRUGS (6)
  1. NEURONTIN [Suspect]
     Indication: NEURALGIA
     Dosage: 900 MG (300 MG, 3 IN 1 D), ORAL
     Route: 048
     Dates: start: 20010317
  2. LASIX [Suspect]
     Indication: ILL-DEFINED DISORDER
  3. ATACAND [Suspect]
     Indication: ILL-DEFINED DISORDER
  4. VITAMINS (VITAMINS) [Concomitant]
  5. DALMANE [Concomitant]
  6. ACETYLSALICYLIC ACID SRT [Concomitant]

REACTIONS (5)
  - BLOOD SODIUM DECREASED [None]
  - BODY HEIGHT DECREASED [None]
  - DIVERTICULITIS [None]
  - HYPOTENSION [None]
  - PAIN IN EXTREMITY [None]
